FAERS Safety Report 9132181 (Version 1)
Quarter: 2013Q1

REPORT INFORMATION
  Report Type: Spontaneous
  Country: US (occurrence: US)
  Receive Date: 20130120
  Receipt Date: 20130120
  Transmission Date: 20140127
  Serious: No
  Sender: FDA-Public Use
  Company Number: US-ASTRAZENECA-2012SE80231

PATIENT
  Age: 56 Year
  Sex: Male

DRUGS (11)
  1. NEXIUM [Suspect]
     Route: 048
  2. SEROQUEL XR [Suspect]
     Indication: INSOMNIA
     Route: 048
  3. SEROQUEL XR [Suspect]
     Indication: DEPRESSION
     Route: 048
  4. SEROQUEL XR [Suspect]
     Indication: ANXIETY
     Route: 048
  5. SEROQUEL XR [Suspect]
     Indication: PANIC ATTACK
     Route: 048
  6. SEROQUEL XR [Suspect]
     Indication: HALLUCINATION, AUDITORY
     Route: 048
  7. SEROQUEL XR [Suspect]
     Indication: INSOMNIA
     Route: 048
  8. SEROQUEL XR [Suspect]
     Indication: DEPRESSION
     Route: 048
  9. SEROQUEL XR [Suspect]
     Indication: ANXIETY
     Route: 048
  10. SEROQUEL XR [Suspect]
     Indication: PANIC ATTACK
     Route: 048
  11. SEROQUEL XR [Suspect]
     Indication: HALLUCINATION, AUDITORY
     Route: 048

REACTIONS (6)
  - Discomfort [Unknown]
  - Gastrooesophageal reflux disease [Unknown]
  - Influenza like illness [Unknown]
  - Abdominal discomfort [Unknown]
  - Initial insomnia [Unknown]
  - Drug dose omission [Unknown]
